FAERS Safety Report 4435752-8 (Version None)
Quarter: 2004Q3

REPORT INFORMATION
  Report Type: 
  Country: None (occurrence: None)
  Receive Date: 20040826
  Receipt Date: 20040813
  Transmission Date: 20050211
  Serious: Yes (Other)
  Sender: FDA-Public Use
  Company Number: 2004049226

PATIENT
  Age: 47 Year
  Sex: Female
  Weight: 53.5244 kg

DRUGS (5)
  1. NEURONTIN [Suspect]
     Indication: PAIN
     Dosage: 800 MG (800 MG, 1 IN 1 D), ORAL
     Route: 048
  2. RALOXIFENE HCL [Concomitant]
  3. CLONAZEPAM [Concomitant]
  4. MIRTAZAPINE [Concomitant]
  5. METHADONE HCL [Concomitant]

REACTIONS (4)
  - HEADACHE [None]
  - OVARIAN NEOPLASM [None]
  - PAIN EXACERBATED [None]
  - PHARMACEUTICAL PRODUCT COMPLAINT [None]
